FAERS Safety Report 11055703 (Version 2)
Quarter: 2015Q2

REPORT INFORMATION
  Report Type: Spontaneous
  Country: US (occurrence: US)
  Receive Date: 20150422
  Receipt Date: 20150429
  Transmission Date: 20150821
  Serious: No
  Sender: FDA-Public Use
  Company Number: CA-TEVA-556455USA

PATIENT
  Age: 31 Year
  Sex: Female
  Weight: 70.37 kg

DRUGS (1)
  1. PLAN B [Suspect]
     Active Substance: LEVONORGESTREL
     Indication: POST COITAL CONTRACEPTION
     Dates: start: 20150409, end: 20150409

REACTIONS (2)
  - Haemorrhage [Unknown]
  - Muscle spasms [Unknown]
